FAERS Safety Report 13340878 (Version 2)
Quarter: 2017Q1

REPORT INFORMATION
  Report Type: Spontaneous
  Country: US (occurrence: US)
  Receive Date: 20170316
  Receipt Date: 20170320
  Transmission Date: 20170428
  Serious: Yes (Other)
  Sender: FDA-Public Use
  Company Number: US-TEVA-749248USA

PATIENT
  Sex: Female
  Weight: 51 kg

DRUGS (1)
  1. CLOPIDOGREL [Suspect]
     Active Substance: CLOPIDOGREL BISULFATE
     Route: 065
     Dates: start: 201607

REACTIONS (7)
  - Weight decreased [Unknown]
  - Alopecia [Unknown]
  - Syncope [Unknown]
  - Blindness [Unknown]
  - Malaise [Unknown]
  - Gastrointestinal disorder [Unknown]
  - Papule [Unknown]
